FAERS Safety Report 9186011 (Version 1)
Quarter: 2013Q1

REPORT INFORMATION
  Report Type: Spontaneous
  Country: US (occurrence: None)
  Receive Date: 20120628
  Receipt Date: 20120628
  Transmission Date: 20140127
  Serious: Yes (Other)
  Sender: FDA-Public Use
  Company Number: PHEH2012US008574

PATIENT
  Age: 65 Year
  Sex: Male

DRUGS (15)
  1. RECLAST [Suspect]
     Dates: start: 20120417
  2. CARVEDIOL (CARVEDIOL) [Concomitant]
  3. DUONEB (PRATROPIUM BROMIDE, SALBUTAMOL SULFATE) [Concomitant]
  4. LISINOPRIL (LISINOPRIL) [Concomitant]
  5. AMANTADINE (AMANTADINE) [Concomitant]
  6. NEUTRA-PHOS-L (POTASSIUM PHOSPHATE DIBASIC, POTASSIUM PHOSPHATE MONOBASIC) [Concomitant]
  7. COUMADINE (WARFARIN SODIUM) [Concomitant]
  8. JEVITY (CORN OIL, ELECTROLYTES NOS, FATTY ACIDS NOS, GLYCINE MAX SEED OIL, MINERALS NOS, POTASSIUM BICARBONATE, POTASSIUM BITARTRATE, SOYA OIL, STARCH MAIZE, VITAMINS NOS, ZEA MAYS SEED) [Concomitant]
  9. LYRICA (PREGAMBLIN) [Concomitant]
  10. CYMBALTA (DULOXETINE HYDROCHLORIDE) [Concomitant]
  11. TRIMETHOPRIM (TRIMETHOPRIM) [Concomitant]
  12. POLYMOXIN B SULFATE (POLYMOXIN B SULFATE) [Concomitant]
  13. ERYTHROMYXCIN (ERYTHROMYCIN) [Concomitant]
  14. FLUOROMETHOLONE (FLUOROMETHELONE) [Concomitant]
  15. BACLOFEN (BACLOFEN) [Concomitant]

REACTIONS (1)
  - Conjunctivitis [None]
